FAERS Safety Report 5240706-8 (Version None)
Quarter: 2007Q1

REPORT INFORMATION
  Report Type: 
  Country: None (occurrence: None)
  Receive Date: 20070219
  Receipt Date: 20070207
  Transmission Date: 20070707
  Serious: Yes (Disabling, Other)
  Sender: FDA-Public Use
  Company Number: PHBS2007JP01918

PATIENT
  Age: 66 Year
  Sex: Female

DRUGS (2)
  1. AREDIA [Suspect]
     Indication: METASTASES TO BONE
     Route: 065
     Dates: start: 20021001, end: 20060801
  2. ZOMETA [Suspect]
     Indication: METASTASES TO BONE
     Dosage: UNK, UNK
     Route: 042
     Dates: start: 20060801, end: 20061001

REACTIONS (3)
  - BONE SWELLING [None]
  - ORAL DISCOMFORT [None]
  - OSTEONECROSIS [None]
